FAERS Safety Report 8228195-2 (Version None)
Quarter: 2012Q1

REPORT INFORMATION
  Report Type: 
  Country: None (occurrence: None)
  Receive Date: 20120322
  Receipt Date: 20120308
  Transmission Date: 20120608
  Serious: Yes (Other)
  Sender: FDA-Public Use
  Company Number: FR-JNJFOC-20110503800

PATIENT
  Sex: Female

DRUGS (4)
  1. RELPAX [Suspect]
     Indication: MIGRAINE
     Route: 065
  2. KETOPROFEN [Suspect]
     Indication: MIGRAINE
     Route: 065
     Dates: start: 20080101
  3. TOPIRAMATE [Suspect]
     Indication: MIGRAINE PROPHYLAXIS
     Route: 048
  4. TOPIRAMATE [Suspect]
     Route: 048
     Dates: start: 20110128

REACTIONS (1)
  - PATELLOFEMORAL PAIN SYNDROME [None]
